FAERS Safety Report 6492868-2 (Version None)
Quarter: 2009Q4

REPORT INFORMATION
  Report Type: 
  Country: None (occurrence: None)
  Receive Date: 20091214
  Receipt Date: 20091204
  Transmission Date: 20100525
  Serious: Yes (Other)
  Sender: FDA-Public Use
  Company Number: US-AMGEN-US369661

PATIENT
  Sex: Female
  Weight: 63.1 kg

DRUGS (37)
  1. NPLATE [Suspect]
     Indication: IDIOPATHIC THROMBOCYTOPENIC PURPURA
     Route: 058
     Dates: start: 20081017, end: 20091015
  2. NPLATE [Suspect]
     Dates: start: 20081017, end: 20081017
  3. NPLATE [Suspect]
     Dates: start: 20081023, end: 20091023
  4. NPLATE [Suspect]
     Dates: start: 20081030, end: 20081106
  5. NPLATE [Suspect]
     Dates: start: 20081113, end: 20081126
  6. NPLATE [Suspect]
     Dates: start: 20081205, end: 20081211
  7. NPLATE [Suspect]
     Dates: start: 20081224, end: 20081224
  8. NPLATE [Suspect]
     Dates: start: 20081231, end: 20081231
  9. NPLATE [Suspect]
     Dates: start: 20090108, end: 20090611
  10. NPLATE [Suspect]
     Dates: start: 20090618, end: 20090702
  11. NPLATE [Suspect]
     Dates: start: 20090716, end: 20090716
  12. NPLATE [Suspect]
     Dates: start: 20090723, end: 20090723
  13. NPLATE [Suspect]
     Dates: start: 20090730, end: 20091015
  14. INSULIN [Concomitant]
  15. ULTRAM [Concomitant]
     Route: 048
  16. ZYRTEC [Concomitant]
     Route: 048
  17. NEXIUM [Concomitant]
  18. EVISTA [Concomitant]
     Route: 048
  19. LIDODERM PATCH (ENDO PHARMACEUTICALS) [Concomitant]
  20. METFORMIN HYDROCHLORIDE [Concomitant]
     Route: 048
  21. AMBIEN [Concomitant]
     Route: 048
  22. FOLIC ACID [Concomitant]
     Route: 048
  23. CYMBALTA [Concomitant]
     Route: 048
  24. IRON [Concomitant]
     Route: 048
  25. SULFAMETHOXAZOLE AND TRIMETHOPRIM [Concomitant]
     Route: 048
  26. LISINOPRIL [Concomitant]
     Route: 048
  27. LANTUS [Concomitant]
     Route: 058
  28. ZANAFLEX [Concomitant]
     Route: 048
  29. NAPROXEN [Concomitant]
     Route: 048
  30. ALPRAZOLAM [Concomitant]
     Route: 048
  31. XYZAL [Concomitant]
     Route: 048
  32. CHROMIUM PICOLINATE [Concomitant]
     Route: 048
  33. CALCIUM WITH VITAMIN D [Concomitant]
     Route: 048
  34. FLUTICASONE PROPIONATE [Concomitant]
     Route: 045
  35. NEOMYCIN [Concomitant]
     Route: 001
  36. COLISTIN [Concomitant]
     Route: 001
  37. AMICAR [Concomitant]

REACTIONS (7)
  - FATIGUE [None]
  - GASTRITIS EROSIVE [None]
  - HAEMORRHOIDS [None]
  - HEADACHE [None]
  - MYELOFIBROSIS [None]
  - PAIN [None]
  - THERAPEUTIC RESPONSE DECREASED [None]
